FAERS Safety Report 14298804 (Version 1)
Quarter: 2017Q4

REPORT INFORMATION
  Report Type: Spontaneous
  Country: US (occurrence: US)
  Receive Date: 20171218
  Receipt Date: 20171218
  Transmission Date: 20180321
  Serious: No
  Sender: FDA-Public Use
  Company Number: US-BIOGEN-2017BI00497005

PATIENT
  Sex: Male

DRUGS (1)
  1. SPINRAZA [Suspect]
     Active Substance: NUSINERSEN
     Indication: SPINAL MUSCULAR ATROPHY
     Route: 065
     Dates: start: 20170201

REACTIONS (5)
  - Respiratory disorder [Recovered/Resolved]
  - Choking [Recovered/Resolved]
  - Fracture [Recovered/Resolved]
  - Spinal muscular atrophy [Recovered/Resolved]
  - Bone disorder [Recovered/Resolved]

NARRATIVE: CASE EVENT DATE: 2017
